FAERS Safety Report 17078478 (Version 2)
Quarter: 2019Q4

REPORT INFORMATION
  Report Type: Report from Study
  Country: NL (occurrence: NL)
  Receive Date: 20191126
  Receipt Date: 20191220
  Transmission Date: 20200122
  Serious: Yes (Hospitalization)
  Sender: FDA-Public Use
  Company Number: NVSC2019NL045701

PATIENT
  Age: 58 Year
  Sex: Male

DRUGS (2)
  1. SANDOSTATINE LAR [Suspect]
     Active Substance: OCTREOTIDE ACETATE
     Dosage: 30 MG/ML (30 MG /2ML)
     Route: 030
  2. SANDOSTATINE LAR [Suspect]
     Active Substance: OCTREOTIDE ACETATE
     Indication: ACROMEGALY
     Dosage: 30 MG/ML (30 MG /2ML)
     Route: 030

REACTIONS (6)
  - Chills [Not Recovered/Not Resolved]
  - Osteitis [Recovered/Resolved]
  - Influenza like illness [Not Recovered/Not Resolved]
  - Pyrexia [Not Recovered/Not Resolved]
  - Liver abscess [Unknown]
  - Abscess jaw [Recovered/Resolved]

NARRATIVE: CASE EVENT DATE: 20191111
